FAERS Safety Report 4320357-X (Version None)
Quarter: 2004Q1

REPORT INFORMATION
  Report Type: 
  Country: None (occurrence: None)
  Receive Date: 20040317
  Receipt Date: 20040305
  Transmission Date: 20041129
  Serious: Yes (Other)
  Sender: FDA-Public Use
  Company Number: CZ-JNJFOC-20040301749

PATIENT
  Age: 63 Year
  Sex: Male

DRUGS (3)
  1. REMICADE [Suspect]
     Indication: RHEUMATOID ARTHRITIS
     Dosage: 3 MG/KG, INTRAVENOUS
     Route: 042
     Dates: start: 20020214, end: 20030327
  2. METHOTREXATE [Concomitant]
  3. MEDROL [Concomitant]

REACTIONS (3)
  - CIRCULATORY COLLAPSE [None]
  - DYSPNOEA [None]
  - HYPOTENSION [None]
